FAERS Safety Report 9169840 (Version 2)
Quarter: 2013Q4

REPORT INFORMATION
  Report Type: Spontaneous
  Country: BR (occurrence: BR)
  Receive Date: 20130319
  Receipt Date: 20131017
  Transmission Date: 20140711
  Serious: Yes (Other)
  Sender: FDA-Public Use
  Company Number: BR-AMGEN-BRASP2013018318

PATIENT
  Age: 69 Year
  Sex: Female
  Weight: 55 kg

DRUGS (6)
  1. ENBREL [Suspect]
     Indication: RHEUMATOID ARTHRITIS
     Dosage: 50 MG, EVERY 15 DAYS
     Route: 058
     Dates: start: 201302, end: 2013
  2. ENBREL [Suspect]
     Dosage: 50 MG, QWK
     Route: 058
     Dates: start: 20130304, end: 20130304
  3. OMEPRAZOLE [Concomitant]
     Indication: PROPHYLAXIS AGAINST GASTROINTESTINAL ULCER
     Dosage: UNK
  4. CALCIUM [Concomitant]
  5. SERTRALINE HYDROCHLORIDE [Concomitant]
     Dosage: UNK
  6. RIVOTRIL [Concomitant]
     Dosage: UNK

REACTIONS (14)
  - Toothache [Not Recovered/Not Resolved]
  - Bone pain [Not Recovered/Not Resolved]
  - Pain [Not Recovered/Not Resolved]
  - Weight decreased [Not Recovered/Not Resolved]
  - Mental impairment [Recovered/Resolved with Sequelae]
  - Depression [Unknown]
  - Memory impairment [Recovered/Resolved with Sequelae]
  - Arthritis [Unknown]
  - Gait disturbance [Not Recovered/Not Resolved]
  - Activities of daily living impaired [Unknown]
  - Disturbance in attention [Recovered/Resolved with Sequelae]
  - Stress [Recovered/Resolved with Sequelae]
  - Alopecia [Not Recovered/Not Resolved]
  - Local swelling [Not Recovered/Not Resolved]
